FAERS Safety Report 6217352-2 (Version None)
Quarter: 2009Q2

REPORT INFORMATION
  Report Type: 
  Country: None (occurrence: None)
  Receive Date: 20090608
  Receipt Date: 20080804
  Transmission Date: 20091009
  Serious: No
  Sender: FDA-Public Use
  Company Number: A0741149A

PATIENT
  Age: 54 Year
  Sex: Male

DRUGS (2)
  1. WELLBUTRIN XL [Suspect]
     Indication: DEPRESSION
     Dosage: 900MG PER DAY
     Route: 048
     Dates: start: 20050101
  2. MAXIPIME [Concomitant]

REACTIONS (1)
  - OVERDOSE [None]
